FAERS Safety Report 6335588-7 (Version None)
Quarter: 2009Q3

REPORT INFORMATION
  Report Type: 
  Country: None (occurrence: None)
  Receive Date: 20090831
  Receipt Date: 20090819
  Transmission Date: 20100115
  Serious: Yes (Other)
  Sender: FDA-Public Use
  Company Number: JP-PFIZER INC-2009258932

PATIENT
  Age: 59 Year

DRUGS (1)
  1. ZOLOFT [Suspect]
     Dosage: 75 MG, 1X/DAY
     Route: 048

REACTIONS (1)
  - GASTRIC ULCER HAEMORRHAGE [None]
